FAERS Safety Report 7107815-X (Version None)
Quarter: 2010Q4

REPORT INFORMATION
  Report Type: 
  Country: None (occurrence: None)
  Receive Date: 20101117
  Receipt Date: 20100713
  Transmission Date: 20110411
  Serious: Yes (Hospitalization, Other)
  Sender: FDA-Public Use
  Company Number: US-BAYER-200930289NA

PATIENT
  Age: 45 Year
  Sex: Female
  Weight: 87 kg

DRUGS (7)
  1. YASMIN [Suspect]
     Indication: CONTRACEPTION
     Dosage: TOTAL DAILY DOSE: 1 DF
     Route: 048
     Dates: start: 20070701, end: 20070901
  2. MUCINEX [Concomitant]
  3. INSPRA [Concomitant]
  4. TRIAMCINOLONE [Concomitant]
     Dates: start: 20070601
  5. PREDNISONE [Concomitant]
     Dates: start: 20070601
  6. ZYRTEC [Concomitant]
     Dates: start: 20070601
  7. WARFARIN [Concomitant]
     Dates: start: 20071001

REACTIONS (8)
  - ASTHENIA [None]
  - CHEST DISCOMFORT [None]
  - DEEP VEIN THROMBOSIS [None]
  - DYSPNOEA EXERTIONAL [None]
  - FLUID RETENTION [None]
  - PAIN [None]
  - PULMONARY EMBOLISM [None]
  - RIGHT VENTRICULAR FAILURE [None]
